FAERS Safety Report 7291619-1 (Version None)
Quarter: 2011Q1

REPORT INFORMATION
  Report Type: 
  Country: None (occurrence: None)
  Receive Date: 20110209
  Receipt Date: 20110209
  Transmission Date: 20110831
  Serious: Yes (Life-Threatening)
  Sender: FDA-Public Use
  Company Number: None

PATIENT
  Sex: Female
  Weight: 82.5547 kg

DRUGS (1)
  1. DEPAKOTE [Suspect]
     Indication: DEPRESSION
     Dates: start: 20110106, end: 20110120

REACTIONS (7)
  - STOMATITIS [None]
  - DIARRHOEA [None]
  - PERINEAL ABSCESS [None]
  - STEVENS-JOHNSON SYNDROME [None]
  - MOUTH HAEMORRHAGE [None]
  - VOMITING [None]
  - ABDOMINAL PAIN [None]
